FAERS Safety Report 19842232 (Version 8)
Quarter: 2024Q2

REPORT INFORMATION
  Report Type: Report from Study
  Country: US (occurrence: US)
  Receive Date: 20210915
  Receipt Date: 20240515
  Transmission Date: 20240715
  Serious: Yes (Other)
  Sender: FDA-Public Use
  Company Number: US-JAZZ-2021-US-016875

PATIENT
  Sex: Female

DRUGS (18)
  1. XYWAV [Suspect]
     Active Substance: CALCIUM OXYBATE\MAGNESIUM OXYBATE\POTASSIUM OXYBATE\SODIUM OXYBATE
     Indication: Narcolepsy
     Dosage: 3.5 GRAM, BID
     Route: 048
     Dates: start: 202107
  2. XYWAV [Suspect]
     Active Substance: CALCIUM OXYBATE\MAGNESIUM OXYBATE\POTASSIUM OXYBATE\SODIUM OXYBATE
     Indication: Cataplexy
  3. NERLYNX [Suspect]
     Active Substance: NERATINIB
     Indication: Product used for unknown indication
     Dosage: UNK
     Dates: start: 20240108
  4. MAXALT-MLT [Concomitant]
     Active Substance: RIZATRIPTAN BENZOATE
     Indication: Product used for unknown indication
     Dosage: UNK
     Dates: start: 20160119
  5. TOPAMAX [Concomitant]
     Active Substance: TOPIRAMATE
     Indication: Product used for unknown indication
     Dosage: UNK, QD
     Dates: start: 20150421
  6. NORTRIPTYLINE HYDROCHLORIDE [Concomitant]
     Active Substance: NORTRIPTYLINE HYDROCHLORIDE
     Indication: Product used for unknown indication
     Dosage: UNK
     Dates: start: 20150421
  7. FLUTICASONE PROPIONATE [Concomitant]
     Active Substance: FLUTICASONE PROPIONATE
     Indication: Product used for unknown indication
     Dosage: UNK, QD
     Dates: start: 20160119
  8. ALCOHOL [Concomitant]
     Active Substance: ALCOHOL
     Indication: Product used for unknown indication
     Dosage: UNK
     Dates: start: 20160503
  9. HELIOCARE [Concomitant]
     Indication: Product used for unknown indication
     Dosage: UNK
     Dates: start: 20210719
  10. IBUPROFEN [Concomitant]
     Active Substance: IBUPROFEN
     Indication: Product used for unknown indication
     Dosage: UNK
     Dates: start: 20210908
  11. VITAMIN B COMPLEX [Concomitant]
     Active Substance: CYANOCOBALAMIN\DEXPANTHENOL\NIACINAMIDE\PYRIDOXINE HYDROCHLORIDE\RIBOFLAVIN 5^-PHOSPHATE SODIUM\THIA
     Indication: Product used for unknown indication
     Dosage: UNK
     Dates: start: 20200908
  12. CALCIUM CITRATE\CHOLECALCIFEROL [Concomitant]
     Active Substance: CALCIUM CITRATE\CHOLECALCIFEROL
     Indication: Product used for unknown indication
     Dosage: UNK, CAPLET
     Dates: start: 20200908
  13. NIVESTYM [FILGRASTIM] [Concomitant]
     Indication: Product used for unknown indication
     Dosage: 0000
     Dates: start: 20221206
  14. SCOPOLAMINE N-OXIDE [Concomitant]
     Active Substance: SCOPOLAMINE N-OXIDE
     Indication: Product used for unknown indication
     Dosage: UNK
     Dates: start: 20221227
  15. CLAVULANATE POTASSIUM [Concomitant]
     Active Substance: CLAVULANATE POTASSIUM
     Indication: Product used for unknown indication
     Dosage: UNK
     Dates: start: 20230322
  16. METOPROLOL SUCCINATE [Concomitant]
     Active Substance: METOPROLOL SUCCINATE
     Indication: Product used for unknown indication
     Dosage: 1.5 TABLETS AT BEDTIME
     Dates: start: 20230420
  17. ANASTROZOLE [Concomitant]
     Active Substance: ANASTROZOLE
     Indication: Product used for unknown indication
     Dosage: UNK
     Dates: start: 20230702
  18. LOPERAMIDE [Concomitant]
     Active Substance: LOPERAMIDE
     Indication: Product used for unknown indication
     Dosage: UNK
     Dates: start: 20240110

REACTIONS (6)
  - Breast cancer [Unknown]
  - Postmenopausal haemorrhage [Unknown]
  - Surgery [Unknown]
  - Nausea [Recovered/Resolved]
  - Diarrhoea [Unknown]
  - Ejection fraction decreased [Recovered/Resolved]
